FAERS Safety Report 23205402 (Version 2)
Quarter: 2023Q4

REPORT INFORMATION
  Report Type: Report from Study
  Country: DE (occurrence: DE)
  Receive Date: 20231120
  Receipt Date: 20231128
  Transmission Date: 20240109
  Serious: Yes (Hospitalization)
  Sender: FDA-Public Use
  Company Number: DE-SA-SAC20231101000948

PATIENT
  Age: 69 Year
  Sex: Male

DRUGS (66)
  1. CARFILZOMIB [Suspect]
     Active Substance: CARFILZOMIB
     Indication: Plasma cell myeloma refractory
     Dosage: 111 MILLIGRAM
     Route: 065
     Dates: start: 20220926, end: 20220927
  2. CARFILZOMIB [Suspect]
     Active Substance: CARFILZOMIB
     Dosage: 111 UNK
     Route: 065
     Dates: start: 20230418, end: 20230419
  3. CARFILZOMIB [Suspect]
     Active Substance: CARFILZOMIB
     Dosage: 111 UNK
     Route: 065
     Dates: start: 20230704, end: 20230802
  4. CARFILZOMIB [Suspect]
     Active Substance: CARFILZOMIB
     Dosage: 111 UNK
     Route: 065
     Dates: start: 20221024, end: 20221025
  5. CARFILZOMIB [Suspect]
     Active Substance: CARFILZOMIB
     Dosage: 111 UNK
     Route: 065
     Dates: start: 20230314, end: 20230315
  6. CARFILZOMIB [Suspect]
     Active Substance: CARFILZOMIB
     Dosage: 111 UNK
     Route: 065
     Dates: start: 20221010, end: 20221011
  7. CARFILZOMIB [Suspect]
     Active Substance: CARFILZOMIB
     Dosage: 111 UNK
     Route: 065
     Dates: start: 20230117, end: 20230118
  8. CARFILZOMIB [Suspect]
     Active Substance: CARFILZOMIB
     Dosage: 111 UNK
     Route: 065
     Dates: start: 20230404, end: 20230405
  9. CARFILZOMIB [Suspect]
     Active Substance: CARFILZOMIB
     Dosage: 111 UNK
     Route: 065
     Dates: start: 20220912, end: 20220913
  10. CARFILZOMIB [Suspect]
     Active Substance: CARFILZOMIB
     Dosage: 111 UNK
     Route: 065
     Dates: start: 20230802, end: 20230802
  11. CARFILZOMIB [Suspect]
     Active Substance: CARFILZOMIB
     Dosage: 111 UNK
     Route: 065
     Dates: start: 20221121, end: 20221122
  12. CARFILZOMIB [Suspect]
     Active Substance: CARFILZOMIB
     Dosage: 111 UNK
     Route: 065
     Dates: start: 20230815, end: 20230816
  13. CARFILZOMIB [Suspect]
     Active Substance: CARFILZOMIB
     Dosage: 111 UNK
     Route: 065
     Dates: start: 20230131, end: 20230201
  14. CARFILZOMIB [Suspect]
     Active Substance: CARFILZOMIB
     Dosage: 111 UNK
     Route: 065
     Dates: start: 20220822, end: 20220822
  15. CARFILZOMIB [Suspect]
     Active Substance: CARFILZOMIB
     Dosage: 111 UNK
     Route: 065
     Dates: start: 20230214, end: 20230215
  16. CARFILZOMIB [Suspect]
     Active Substance: CARFILZOMIB
     Dosage: 111 UNK
     Route: 065
     Dates: start: 20230502, end: 20230503
  17. CARFILZOMIB [Suspect]
     Active Substance: CARFILZOMIB
     Dosage: 111 UNK
     Route: 065
     Dates: start: 20221205, end: 20221206
  18. CARFILZOMIB [Suspect]
     Active Substance: CARFILZOMIB
     Dosage: 40 UNK
     Route: 065
     Dates: start: 20220816, end: 20220816
  19. CARFILZOMIB [Suspect]
     Active Substance: CARFILZOMIB
     Dosage: 111 UNK
     Route: 065
     Dates: start: 20221205, end: 20221206
  20. CARFILZOMIB [Suspect]
     Active Substance: CARFILZOMIB
     Dosage: 111 UNK
     Route: 065
     Dates: start: 20230516, end: 20230517
  21. CARFILZOMIB [Suspect]
     Active Substance: CARFILZOMIB
     Dosage: 111 UNK
     Route: 065
  22. DEXAMETHASONE [Suspect]
     Active Substance: DEXAMETHASONE
     Indication: Plasma cell myeloma refractory
     Dosage: 20 MG
     Route: 065
     Dates: start: 20221107, end: 20221108
  23. DEXAMETHASONE [Suspect]
     Active Substance: DEXAMETHASONE
     Dosage: 20 MG
     Route: 065
     Dates: start: 20230802, end: 20230802
  24. DEXAMETHASONE [Suspect]
     Active Substance: DEXAMETHASONE
     Dosage: 20 MG
     Route: 065
     Dates: start: 20220912, end: 20220913
  25. DEXAMETHASONE [Suspect]
     Active Substance: DEXAMETHASONE
     Dosage: 20 MG
     Route: 065
     Dates: start: 20230531, end: 20230621
  26. DEXAMETHASONE [Suspect]
     Active Substance: DEXAMETHASONE
     Dosage: 20 MG
     Route: 065
     Dates: start: 20230815, end: 20230816
  27. DEXAMETHASONE [Suspect]
     Active Substance: DEXAMETHASONE
     Dosage: 20 MG
     Route: 065
     Dates: start: 20230131, end: 20230201
  28. DEXAMETHASONE [Suspect]
     Active Substance: DEXAMETHASONE
     Dosage: 20 MG
     Route: 065
     Dates: start: 20221024, end: 20221025
  29. DEXAMETHASONE [Suspect]
     Active Substance: DEXAMETHASONE
     Dosage: 20 MG
     Route: 065
     Dates: start: 20230117, end: 20230118
  30. DEXAMETHASONE [Suspect]
     Active Substance: DEXAMETHASONE
     Dosage: 20 MG
     Route: 065
     Dates: start: 20221121, end: 20221122
  31. DEXAMETHASONE [Suspect]
     Active Substance: DEXAMETHASONE
     Dosage: 20 MG
     Route: 065
     Dates: start: 20221205, end: 20221206
  32. DEXAMETHASONE [Suspect]
     Active Substance: DEXAMETHASONE
     Dosage: 20 MG
     Route: 065
     Dates: start: 20230228, end: 20230301
  33. DEXAMETHASONE [Suspect]
     Active Substance: DEXAMETHASONE
     Dosage: 20 MG
     Route: 065
     Dates: start: 20230404, end: 20230405
  34. DEXAMETHASONE [Suspect]
     Active Substance: DEXAMETHASONE
     Dosage: 20 MG
     Route: 065
     Dates: start: 20230516, end: 20230517
  35. DEXAMETHASONE [Suspect]
     Active Substance: DEXAMETHASONE
     Dosage: 20 MG
     Route: 065
     Dates: start: 20230418, end: 20230419
  36. DEXAMETHASONE [Suspect]
     Active Substance: DEXAMETHASONE
     Dosage: 20 MG
     Route: 065
     Dates: start: 20230704, end: 20230802
  37. DEXAMETHASONE [Suspect]
     Active Substance: DEXAMETHASONE
     Dosage: 20 MG (D1, D2, D8, D9, D15, D16, D22)
     Route: 065
     Dates: start: 20220815, end: 20220905
  38. DEXAMETHASONE [Suspect]
     Active Substance: DEXAMETHASONE
     Dosage: 20 MG (D1, D2)
     Route: 065
     Dates: start: 20221010, end: 20221011
  39. DEXAMETHASONE [Suspect]
     Active Substance: DEXAMETHASONE
     Dosage: 20 MG
     Route: 065
     Dates: start: 20220926, end: 20220927
  40. DEXAMETHASONE [Suspect]
     Active Substance: DEXAMETHASONE
     Dosage: 20 MG
     Route: 065
     Dates: start: 20230502, end: 20230503
  41. DEXAMETHASONE [Suspect]
     Active Substance: DEXAMETHASONE
     Dosage: 20 MG
     Route: 065
     Dates: start: 20230314, end: 20230315
  42. ISATUXIMAB [Suspect]
     Active Substance: ISATUXIMAB
     Indication: Plasma cell myeloma refractory
     Dosage: 760 MG, BIW
     Route: 065
     Dates: start: 20230117, end: 20230117
  43. ISATUXIMAB [Suspect]
     Active Substance: ISATUXIMAB
     Dosage: 760 MG
     Route: 065
     Dates: start: 20221010, end: 20221010
  44. ISATUXIMAB [Suspect]
     Active Substance: ISATUXIMAB
     Dosage: 760 MG
     Route: 065
     Dates: start: 20230815, end: 20230815
  45. ISATUXIMAB [Suspect]
     Active Substance: ISATUXIMAB
     Dosage: 760 MG, 1X
     Route: 065
     Dates: start: 20230102, end: 20230102
  46. ISATUXIMAB [Suspect]
     Active Substance: ISATUXIMAB
     Dosage: 760 MG, 1X
     Route: 065
     Dates: start: 20221121, end: 20221121
  47. ISATUXIMAB [Suspect]
     Active Substance: ISATUXIMAB
     Dosage: 760 MG, BIW
     Route: 065
     Dates: start: 20230214, end: 20230215
  48. ISATUXIMAB [Suspect]
     Active Substance: ISATUXIMAB
     Dosage: 760 MG, BIW
     Route: 065
     Dates: start: 20230704, end: 20230801
  49. ISATUXIMAB [Suspect]
     Active Substance: ISATUXIMAB
     Dosage: 760 MG, BIW
     Route: 065
     Dates: start: 20230502, end: 20230503
  50. ISATUXIMAB [Suspect]
     Active Substance: ISATUXIMAB
     Dosage: 760 MG, BIW
     Route: 065
     Dates: start: 20230516, end: 20230620
  51. ISATUXIMAB [Suspect]
     Active Substance: ISATUXIMAB
     Dosage: 760 MG (D1, D8, D15, D22)
     Route: 065
     Dates: start: 20220815, end: 20220905
  52. ISATUXIMAB [Suspect]
     Active Substance: ISATUXIMAB
     Dosage: 760 MG, BIW
     Route: 065
     Dates: start: 20230404, end: 20230405
  53. ISATUXIMAB [Suspect]
     Active Substance: ISATUXIMAB
     Dosage: 760 MG, BIW
     Route: 065
     Dates: start: 20220912, end: 20220926
  54. ISATUXIMAB [Suspect]
     Active Substance: ISATUXIMAB
     Dosage: 760 MG, BIW
     Route: 065
     Dates: start: 20230228, end: 20230301
  55. COTRIM [Concomitant]
     Active Substance: SULFAMETHOXAZOLE\TRIMETHOPRIM
     Indication: Aortic aneurysm
     Dosage: UNK
     Dates: start: 20201123
  56. PANTOPRAZOLE [Concomitant]
     Active Substance: PANTOPRAZOLE
     Indication: Gastritis prophylaxis
     Dosage: UNK
     Dates: start: 20230215
  57. IBANDRONATE SODIUM [Concomitant]
     Active Substance: IBANDRONATE SODIUM
     Indication: Prophylaxis
     Dosage: UNK
     Dates: start: 20170630
  58. METFORMIN [Concomitant]
     Active Substance: METFORMIN HYDROCHLORIDE
     Indication: Diabetes mellitus
     Dosage: UNK
     Dates: start: 2015
  59. PLATELETS [Concomitant]
     Active Substance: HUMAN PLATELET, ALLOGENIC
     Dosage: UNK
     Dates: start: 20220919
  60. ACETAMINOPHEN [Concomitant]
     Active Substance: ACETAMINOPHEN
     Indication: Allergy prophylaxis
     Dosage: UNK UNK, QCY
     Dates: start: 20220815
  61. HUMAN RED BLOOD CELL [Concomitant]
     Active Substance: HUMAN RED BLOOD CELL
     Dosage: UNK
     Dates: start: 20221006
  62. OMEPRAZOLE [Concomitant]
     Active Substance: OMEPRAZOLE
     Dosage: UNK
     Dates: start: 20230103
  63. BEZAFIBRATE [Concomitant]
     Active Substance: BEZAFIBRATE
     Indication: Hyperlipidaemia
     Dosage: UNK
     Dates: start: 201611
  64. CLEMASTINE [Concomitant]
     Active Substance: CLEMASTINE
     Indication: Allergy prophylaxis
     Dosage: UNK UNK, QCY
     Dates: start: 20220815
  65. LOPERAMIDE [Concomitant]
     Active Substance: LOPERAMIDE
     Dosage: UNK
     Dates: start: 20221226, end: 20230102
  66. ACYCLOVIR [Concomitant]
     Active Substance: ACYCLOVIR
     Indication: Infection prophylaxis
     Dosage: UNK
     Dates: start: 20201123

REACTIONS (1)
  - Adverse event [Recovered/Resolved]

NARRATIVE: CASE EVENT DATE: 20231027
